FAERS Safety Report 12184227 (Version 1)
Quarter: 2016Q1

REPORT INFORMATION
  Report Type: Report from Study
  Country: US (occurrence: US)
  Receive Date: 20160316
  Receipt Date: 20160316
  Transmission Date: 20160526
  Serious: Yes (Other)
  Sender: FDA-Public Use
  Company Number: US-BIOGEN-2014BI012958

PATIENT
  Sex: Female

DRUGS (1)
  1. AVONEX [Suspect]
     Active Substance: INTERFERON BETA-1A
     Indication: MULTIPLE SCLEROSIS
     Route: 030
     Dates: start: 20131027

REACTIONS (16)
  - Tremor [Recovered/Resolved]
  - Blood potassium decreased [Not Recovered/Not Resolved]
  - Myalgia [Recovered/Resolved]
  - Neoplasm malignant [Unknown]
  - Abasia [Recovered/Resolved]
  - Seizure [Recovered/Resolved]
  - Epilepsy [Unknown]
  - Chills [Recovered/Resolved]
  - Muscle spasms [Not Recovered/Not Resolved]
  - Vitamin D decreased [Not Recovered/Not Resolved]
  - Chest pain [Recovered/Resolved]
  - Dyspnoea [Recovered/Resolved]
  - Myocardial ischaemia [Not Recovered/Not Resolved]
  - Skin mass [Not Recovered/Not Resolved]
  - Urticaria [Recovered/Resolved]
  - Pyrexia [Recovered/Resolved]
